FAERS Safety Report 19745212 (Version 1)
Quarter: 2021Q3

REPORT INFORMATION
  Report Type: Spontaneous
  Country: CA (occurrence: CA)
  Receive Date: 20210825
  Receipt Date: 20210825
  Transmission Date: 20211014
  Serious: Yes (Other)
  Sender: FDA-Public Use
  Company Number: CA-PFIZER INC-202101070012

PATIENT
  Age: 31 Year
  Sex: Male
  Weight: 54.4 kg

DRUGS (1)
  1. METHOTREXATE SODIUM. [Suspect]
     Active Substance: METHOTREXATE SODIUM
     Dosage: 25 MG, WEEKLY
     Route: 058

REACTIONS (7)
  - Cystoid macular oedema [Unknown]
  - Therapeutic product effect incomplete [Unknown]
  - Visual impairment [Unknown]
  - Uveitis [Unknown]
  - Intraocular pressure increased [Unknown]
  - Off label use [Unknown]
  - Product use issue [Unknown]
